FAERS Safety Report 12225994 (Version 1)
Quarter: 2016Q1

REPORT INFORMATION
  Report Type: Spontaneous
  Country: US (occurrence: US)
  Receive Date: 20160331
  Receipt Date: 20160331
  Transmission Date: 20160526
  Serious: No
  Sender: FDA-Public Use
  Company Number: US-ASTRAZENECA-2016SE20940

PATIENT

DRUGS (1)
  1. CRESTOR [Suspect]
     Active Substance: ROSUVASTATIN CALCIUM
     Dosage: UNKNOWN
     Route: 048

REACTIONS (11)
  - Hypophagia [Unknown]
  - Muscular weakness [Unknown]
  - Malaise [Unknown]
  - Adverse drug reaction [Unknown]
  - Photosensitivity reaction [Unknown]
  - Regurgitation [Unknown]
  - Migraine [Unknown]
  - Asthenia [Unknown]
  - Headache [Unknown]
  - Gait disturbance [Unknown]
  - Musculoskeletal discomfort [Unknown]
